FAERS Safety Report 18182419 (Version 1)
Quarter: 2020Q3

REPORT INFORMATION
  Report Type: Spontaneous
  Country: US (occurrence: US)
  Receive Date: 20200821
  Receipt Date: 20200821
  Transmission Date: 20201103
  Serious: Yes (Other)
  Sender: FDA-Public Use
  Company Number: US-FRESENIUS KABI-FK202008529

PATIENT
  Sex: Male

DRUGS (1)
  1. PROTAMINE SULFATE INJECTION, USP [Suspect]
     Active Substance: PROTAMINE SULFATE
     Indication: PROCOAGULANT THERAPY
     Dosage: UNKNOWN
     Route: 050

REACTIONS (2)
  - Hypotension [Recovered/Resolved]
  - Bradycardia [Recovered/Resolved]
